FAERS Safety Report 8484137-6 (Version None)
Quarter: 2012Q2

REPORT INFORMATION
  Report Type: 
  Country: None (occurrence: None)
  Receive Date: 20120625
  Receipt Date: 20120611
  Transmission Date: 20120825
  Serious: Yes (Hospitalization)
  Sender: FDA-Public Use
  Company Number: JPI-P-021993

PATIENT
  Age: 56 Year
  Sex: Male

DRUGS (2)
  1. XYREM [Suspect]
     Indication: NARCOLEPSY
     Dosage: 6;7.5 GM (3;3.75 GM, 2 IN 1 D), ORAL
     Route: 048
     Dates: start: 20060615
  2. XYREM [Suspect]
     Indication: NARCOLEPSY
     Dosage: 6;7.5 GM (3;3.75 GM, 2 IN 1 D), ORAL
     Route: 048
     Dates: start: 20060421

REACTIONS (3)
  - DEEP VEIN THROMBOSIS [None]
  - INTERNATIONAL NORMALISED RATIO INCREASED [None]
  - PULMONARY EMBOLISM [None]
